FAERS Safety Report 9389982 (Version 1)
Quarter: 2013Q3

REPORT INFORMATION
  Report Type: Spontaneous
  Country: US (occurrence: US)
  Receive Date: 20130708
  Receipt Date: 20130708
  Transmission Date: 20140515
  Serious: No
  Sender: FDA-Public Use
  Company Number: US-AMGEN-USASP2013044044

PATIENT
  Age: 32 Year
  Sex: Female
  Weight: 95.24 kg

DRUGS (10)
  1. ENBREL [Suspect]
     Indication: RHEUMATOID ARTHRITIS
     Dosage: 50 MG, QWK
     Route: 058
     Dates: start: 20130426
  2. LYBREL [Concomitant]
     Dosage: 90-20 MUG, UNK
  3. PREDNISONE [Concomitant]
     Dosage: 1 MG, UNK
  4. FOLIC ACID [Concomitant]
     Dosage: UNK
  5. ZOLOFT [Concomitant]
     Dosage: 25 MG, UNK
  6. ATENOLOL [Concomitant]
     Dosage: 50 MG, UNK
  7. METHOTREXATE [Concomitant]
     Dosage: 50MG/2ML, UNK
  8. PLAQUENIL                          /00072602/ [Concomitant]
     Dosage: 200 MG, UNK
  9. DIHYDROERGOTAMIN [Concomitant]
     Dosage: 1 MG/ML, UNK
  10. IMITREX                            /01044801/ [Concomitant]
     Dosage: 25 MG, UNK

REACTIONS (4)
  - Injection site erythema [Not Recovered/Not Resolved]
  - Injection site pruritus [Not Recovered/Not Resolved]
  - Injection site rash [Not Recovered/Not Resolved]
  - Injection site reaction [Not Recovered/Not Resolved]
